FAERS Safety Report 9935502 (Version 1)
Quarter: 2014Q1

REPORT INFORMATION
  Report Type: Spontaneous
  Country: US (occurrence: US)
  Receive Date: 20140228
  Receipt Date: 20140228
  Transmission Date: 20141002
  Serious: No
  Sender: FDA-Public Use
  Company Number: US-PFIZER INC-2014055828

PATIENT
  Age: 38 Year
  Sex: Male
  Weight: 83.9 kg

DRUGS (4)
  1. NEURONTIN [Suspect]
     Dosage: 600 MG, 4X/DAY
     Route: 048
     Dates: end: 2013
  2. MELOXICAM [Concomitant]
     Dosage: UNK
  3. TIZANIDINE [Concomitant]
     Dosage: UNK
  4. OXYCODONE [Concomitant]
     Dosage: 10 MG, 5X/DAY

REACTIONS (4)
  - Drug intolerance [Unknown]
  - Drug hypersensitivity [Unknown]
  - Eye swelling [Unknown]
  - Skin discolouration [Unknown]
